FAERS Safety Report 21734142 (Version 1)
Quarter: 2022Q4

REPORT INFORMATION
  Report Type: Spontaneous
  Country: IT (occurrence: IT)
  Receive Date: 20221215
  Receipt Date: 20221215
  Transmission Date: 20230113
  Serious: Yes (Other)
  Sender: FDA-Public Use
  Company Number: IT-TEVA-2022-IT-2835051

PATIENT
  Age: 16 Year
  Sex: Male

DRUGS (9)
  1. VINCRISTINE [Suspect]
     Active Substance: VINCRISTINE
     Indication: Desmoplastic small round cell tumour
     Dosage: ON DAYS 1, 8 AND 15 DURING IRIVA REGIMEN SCHEDULED FOR 4 CYCLES, 1.5 MG/M2
     Route: 065
  2. VINCRISTINE [Suspect]
     Active Substance: VINCRISTINE
     Dosage: ON DAYS 1, 8 AND 15 DURING ALTERNATING COURSES OF IVAD REGIMEN AND IVE REGIMEN, 1.5 MG/M2
     Route: 065
  3. ADRIAMYCIN [Suspect]
     Active Substance: DOXORUBICIN HYDROCHLORIDE
     Indication: Desmoplastic small round cell tumour
     Dosage: ON DAYS 1 AND 2 DURING IVAD REGIMEN, 40 MG/M2
     Route: 065
  4. IFOSFAMIDE [Suspect]
     Active Substance: IFOSFAMIDE
     Indication: Desmoplastic small round cell tumour
     Dosage: 3 G/M2 ON DAYS 1 AND 2 DURING IRIVA REGIMEN SCHEDULED FOR 4 CYCLES
     Route: 065
  5. IFOSFAMIDE [Suspect]
     Active Substance: IFOSFAMIDE
     Dosage: 3 G/M2 ON DAYS 1 AND 2 DURING ALTERNATING COURSES OF IVAD REGIMEN AND IVE REGIMEN
     Route: 065
  6. ACTINOMYCIN D [Concomitant]
     Active Substance: DACTINOMYCIN
     Indication: Desmoplastic small round cell tumour
     Dosage: DURING IRIVA REGIMEN SCHEDULED FOR 4 CYCLES, 1.5 MG/M2
     Route: 065
  7. ETOPOSIDE [Concomitant]
     Active Substance: ETOPOSIDE
     Indication: Desmoplastic small round cell tumour
     Dosage: ON DAYS 1 TO 3 DURING IVE REGIMEN, 150 MG/M2
     Route: 065
  8. IRINOTECAN [Concomitant]
     Active Substance: IRINOTECAN
     Indication: Desmoplastic small round cell tumour
     Dosage: DURING IRIVA REGIMEN SCHEDULED FOR 4 CYCLES, 20 MG/M2
     Route: 065
  9. MESNA [Concomitant]
     Active Substance: MESNA
     Indication: Prophylaxis
     Dosage: DOSE EQUIVALENT TO IFOSFAMIDE
     Route: 065

REACTIONS (2)
  - Neutropenia [Unknown]
  - Stomatitis [Unknown]
